FAERS Safety Report 8066631-5 (Version None)
Quarter: 2012Q1

REPORT INFORMATION
  Report Type: 
  Country: None (occurrence: None)
  Receive Date: 20120124
  Receipt Date: 20120119
  Transmission Date: 20120608
  Serious: Yes (Other)
  Sender: FDA-Public Use
  Company Number: PHEH2012US001708

PATIENT
  Sex: Male

DRUGS (15)
  1. FOCALIN XR [Suspect]
     Dosage: 20 MG, QD
  2. MELOXICAM [Concomitant]
     Dosage: UNK UKN, UNK
  3. CYMBALTA [Concomitant]
     Dosage: UNK UKN, UNK
  4. ACIPHEX [Concomitant]
     Dosage: UNK UKN, UNK
  5. AMLODIPINE [Concomitant]
     Dosage: UNK UKN, UNK
  6. ACETAMINOPHEN [Concomitant]
     Dosage: UNK UKN, UNK
  7. ASACOL [Concomitant]
     Dosage: UNK UKN, UNK
  8. LIPITOR [Concomitant]
     Dosage: UNK UKN, UNK
  9. NORTRIPTYLINE HCL [Concomitant]
     Dosage: UNK UKN, UNK
  10. SKELAXIN [Concomitant]
     Dosage: UNK UKN, UNK
  11. ZYRTEC [Concomitant]
     Dosage: UNK UKN, UNK
  12. WELLBUTRIN SR [Concomitant]
     Dosage: UNK UKN, UNK
  13. TRAMADOL HCL [Concomitant]
     Dosage: UNK UKN, UNK
  14. KLOR-CON [Concomitant]
     Dosage: UNK UKN, UNK
  15. LISINOPRIL AND HYDROCHLOROTHIAZIDE [Concomitant]
     Dosage: UNK UKN, UNK

REACTIONS (1)
  - ATRIAL FIBRILLATION [None]
